FAERS Safety Report 24108438 (Version 1)
Quarter: 2024Q3

REPORT INFORMATION
  Report Type: Spontaneous
  Country: PT (occurrence: PT)
  Receive Date: 20240718
  Receipt Date: 20240718
  Transmission Date: 20241017
  Serious: Yes (Other)
  Sender: AMGEN
  Company Number: None

PATIENT
  Age: 48 Year
  Sex: Female
  Weight: 67 kg

DRUGS (1)
  1. ADALIMUMAB [Suspect]
     Active Substance: ADALIMUMAB\ISOPROPYL ALCOHOL
     Indication: Rheumatoid arthritis
     Dosage: 40 MG 15-15 DAYS 11
     Route: 058
     Dates: start: 20231101, end: 20240415

REACTIONS (1)
  - Paradoxical psoriasis [Recovering/Resolving]

NARRATIVE: CASE EVENT DATE: 20240401
